FAERS Safety Report 6491150-7 (Version None)
Quarter: 2009Q4

REPORT INFORMATION
  Report Type: 
  Country: None (occurrence: None)
  Receive Date: 20091207
  Receipt Date: 20091124
  Transmission Date: 20100525
  Serious: Yes (Other)
  Sender: FDA-Public Use
  Company Number: 8055204

PATIENT
  Age: 55 Year
  Sex: Female
  Weight: 53 kg

DRUGS (1)
  1. CERTOLIZUMAB PEGOL [Suspect]
     Indication: RHEUMATOID ARTHRITIS
     Dosage: 400 MG 1/2W SC
     Route: 058
     Dates: start: 20060509

REACTIONS (3)
  - CULTURE WOUND POSITIVE [None]
  - INCISION SITE ERYTHEMA [None]
  - STAPHYLOCOCCAL INFECTION [None]
